FAERS Safety Report 7766915-1 (Version None)
Quarter: 2011Q3

REPORT INFORMATION
  Report Type: 
  Country: None (occurrence: None)
  Receive Date: 20110922
  Receipt Date: 20110919
  Transmission Date: 20111222
  Serious: No
  Sender: FDA-Public Use
  Company Number: US-PFIZER INC-2011222123

PATIENT
  Sex: Female
  Weight: 57.143 kg

DRUGS (3)
  1. PRISTIQ [Suspect]
     Indication: DEPRESSION
  2. PRISTIQ [Suspect]
     Indication: BIPOLAR DISORDER
     Dosage: 50 MG, 1X/DAY
     Route: 048
     Dates: start: 20071201
  3. LAMICTAL [Concomitant]
     Dosage: UNK

REACTIONS (7)
  - FEELING ABNORMAL [None]
  - NAUSEA [None]
  - IRRITABILITY [None]
  - DIZZINESS [None]
  - BRADYPHRENIA [None]
  - CONFUSIONAL STATE [None]
  - HEADACHE [None]
